FAERS Safety Report 8901930 (Version 1)
Quarter: 2012Q4

REPORT INFORMATION
  Report Type: Spontaneous
  Country: US (occurrence: None)
  Receive Date: 20121109
  Receipt Date: 20121109
  Transmission Date: 20130627
  Serious: Yes (Hospitalization, Disabling, Other)
  Sender: FDA-Public Use
  Company Number: None

PATIENT
  Age: 63 Year
  Sex: Female

DRUGS (2)
  1. FOSAMAX [Suspect]
     Indication: OSTEOPENIA
     Route: 048
     Dates: start: 20020701, end: 20090701
  2. FOSAMAX [Suspect]
     Indication: PROPHYLAXIS
     Route: 048
     Dates: start: 20020701, end: 20090701

REACTIONS (14)
  - Arthralgia [None]
  - Femur fracture [None]
  - Stress fracture [None]
  - Fall [None]
  - Weight bearing difficulty [None]
  - Gait disturbance [None]
  - Impaired work ability [None]
  - Loss of employment [None]
  - Gingival infection [None]
  - Necrosis [None]
  - Osteomyelitis [None]
  - Bone loss [None]
  - Tooth loss [None]
  - Mastication disorder [None]
